FAERS Safety Report 6057178-6 (Version None)
Quarter: 2009Q1

REPORT INFORMATION
  Report Type: 
  Country: None (occurrence: None)
  Receive Date: 20090129
  Receipt Date: 20080128
  Transmission Date: 20090719
  Serious: No
  Sender: FDA-Public Use
  Company Number: A0707242A

PATIENT
  Sex: Male

DRUGS (2)
  1. BUPROPION HCL [Suspect]
     Indication: DEPRESSION
     Route: 048
  2. WELLBUTRIN [Concomitant]
     Indication: DEPRESSION
     Route: 048

REACTIONS (1)
  - DRUG INEFFECTIVE [None]
